FAERS Safety Report 9256794 (Version 2)
Quarter: 2013Q3

REPORT INFORMATION
  Report Type: Spontaneous
  Country: US (occurrence: US)
  Receive Date: 20130426
  Receipt Date: 20130705
  Transmission Date: 20140515
  Serious: Yes (Disabling, Other)
  Sender: FDA-Public Use
  Company Number: US-ASTRAZENECA-2013SE27573

PATIENT
  Age: 40 Year
  Sex: Female
  Weight: 95.7 kg

DRUGS (25)
  1. NEXIUM [Suspect]
     Indication: HYPERCHLORHYDRIA
     Dosage: 1 TO 2 TIMES
     Route: 048
  2. NEXIUM [Suspect]
     Indication: HYPERCHLORHYDRIA
     Dosage: 1 TO 2 TIMES
     Route: 048
  3. NEXIUM [Suspect]
     Indication: HYPERCHLORHYDRIA
     Route: 048
     Dates: start: 20110411
  4. NEXIUM [Suspect]
     Indication: HYPERCHLORHYDRIA
     Route: 048
     Dates: start: 20110411
  5. PRILOSEC [Suspect]
     Route: 048
  6. PRILOSEC OTC [Suspect]
     Route: 048
  7. ZOLOF [Concomitant]
  8. PROZAC [Concomitant]
     Route: 048
     Dates: start: 20110415
  9. PREVACID [Concomitant]
     Indication: HYPERCHLORHYDRIA
     Dates: start: 1998, end: 2003
  10. CELEBREX [Concomitant]
     Indication: BACK PAIN
     Dates: start: 1998, end: 2003
  11. GASTROLOC [Concomitant]
     Dates: start: 1998, end: 2003
  12. ZANTAC [Concomitant]
  13. TUMS [Concomitant]
  14. MILK OF MAGNESIA/MYLANTA [Concomitant]
  15. TAGAMET [Concomitant]
  16. PEPCID [Concomitant]
  17. ALKA SELTIZAR [Concomitant]
  18. PEPTO BISMOL [Concomitant]
  19. DIOVAN HCT [Concomitant]
     Dosage: 25-160 MG  ONCE DAY
     Route: 048
     Dates: start: 20110415
  20. FERROUS SULFATE [Concomitant]
     Route: 048
     Dates: start: 20110411
  21. IBUPROFEN [Concomitant]
     Route: 048
     Dates: start: 20110415
  22. LOTREL [Concomitant]
     Dosage: 10-20 MG DAILY
     Route: 048
     Dates: start: 20110415
  23. SIMVASTATIN [Concomitant]
     Indication: BLOOD CHOLESTEROL ABNORMAL
     Route: 048
     Dates: start: 20110411
  24. VICODIN [Concomitant]
     Indication: PAIN
     Dosage: 5-500 MG TID,PRN
     Route: 048
     Dates: start: 20110617
  25. VITAMIN C [Concomitant]
     Route: 048
     Dates: start: 20110411

REACTIONS (21)
  - Pain in extremity [Unknown]
  - Emotional disorder [Unknown]
  - Benign bone neoplasm [Unknown]
  - Back pain [Unknown]
  - Bone disorder [Unknown]
  - Multiple fractures [Unknown]
  - Neck pain [Unknown]
  - Osteoporosis [Unknown]
  - Calcium deficiency [Unknown]
  - Cataract [Unknown]
  - Arthritis [Unknown]
  - Glaucoma [Unknown]
  - Aortic disorder [Unknown]
  - Rheumatoid arthritis [Unknown]
  - Panic attack [Unknown]
  - Poor quality sleep [Unknown]
  - Disturbance in attention [Unknown]
  - Vitamin D deficiency [Unknown]
  - Spinal fracture [Unknown]
  - Liver disorder [Unknown]
  - Depression [Unknown]
